FAERS Safety Report 7821897 (Version 2)
Quarter: 2012Q4

REPORT INFORMATION
  Report Type: 
  Country: US (occurrence: US)
  Receive Date: 20110222
  Receipt Date: 20120910
  Transmission Date: 20130627
  Serious: Yes (Other)
  Sender: FDA-Public Use
  Company Number: US-US-EMD SERONO, INC.-7042904

PATIENT
  Sex: Male
  Weight: 136 kg

DRUGS (1)
  1. REBIF [Suspect]
     Indication: MULTIPLE SCLEROSIS
     Route: 058
     Dates: start: 20070518

REACTIONS (3)
  - Staphylococcal infection [Recovering/Resolving]
  - Injection site erythema [Unknown]
  - Injection site bruising [Unknown]
